FAERS Safety Report 7215856-7 (Version None)
Quarter: 2011Q1

REPORT INFORMATION
  Report Type: 
  Country: None (occurrence: None)
  Receive Date: 20110105
  Receipt Date: 20110105
  Transmission Date: 20110831
  Serious: Yes (Hospitalization)
  Sender: FDA-Public Use
  Company Number: None

PATIENT
  Sex: Male
  Weight: 57.5 kg

DRUGS (10)
  1. TAXOL [Suspect]
     Dosage: 76 MG
     Dates: end: 20101227
  2. CARBOPLATIN [Suspect]
     Dosage: 156 MG
     Dates: end: 20101227
  3. LOVASTIN [Concomitant]
  4. HYDRODIURIL [Concomitant]
  5. VASOTEC [Concomitant]
  6. DILTIAZEM [Concomitant]
  7. OXYCODONE [Concomitant]
  8. MAGNESIUM OXIDE [Concomitant]
  9. THIAMINE [Concomitant]
  10. THIAMINE [Concomitant]

REACTIONS (8)
  - CONFUSIONAL STATE [None]
  - MASTOIDITIS [None]
  - CHEST PAIN [None]
  - DEHYDRATION [None]
  - ALCOHOL WITHDRAWAL SYNDROME [None]
  - THROMBOCYTOPENIA [None]
  - ODYNOPHAGIA [None]
  - ANAEMIA [None]
